FAERS Safety Report 10963313 (Version 1)
Quarter: 2015Q1

REPORT INFORMATION
  Report Type: Spontaneous
  Country: FR (occurrence: FR)
  Receive Date: 20150327
  Receipt Date: 20150327
  Transmission Date: 20150721
  Serious: Yes (Death)
  Sender: FDA-Public Use
  Company Number: FR-009507513-1503FRA013542

PATIENT
  Age: 89 Year
  Sex: Female

DRUGS (9)
  1. LANTUS [Concomitant]
     Active Substance: INSULIN GLARGINE
  2. TEARS GEL [Concomitant]
     Dosage: OPHTALMIC GEL, SINGLE DOSE
  3. CYMBALTA [Suspect]
     Active Substance: DULOXETINE HYDROCHLORIDE
     Indication: DEPRESSION
     Dosage: 30 MG, QD
     Route: 048
     Dates: end: 20150203
  4. DIFFU-K [Concomitant]
     Active Substance: POTASSIUM CHLORIDE
  5. SOLIAN [Suspect]
     Active Substance: AMISULPRIDE
     Indication: DEPRESSION
     Dosage: 50 MG, QD
     Route: 048
     Dates: start: 20141203, end: 20150203
  6. DUROGESIC [Concomitant]
     Active Substance: FENTANYL
     Dosage: TRANSDERMAL PATCH 12 UG/HOUR
     Route: 062
  7. DETENSIEL [Concomitant]
     Active Substance: BISOPROLOL FUMARATE
  8. NORSET [Suspect]
     Active Substance: MIRTAZAPINE
     Indication: DEPRESSION
     Dosage: 15 MG, QD
     Route: 048
     Dates: end: 20150203
  9. COUMADIN [Concomitant]
     Active Substance: WARFARIN SODIUM

REACTIONS (3)
  - Decreased appetite [Not Recovered/Not Resolved]
  - Bedridden [Fatal]
  - Dysphagia [Not Recovered/Not Resolved]

NARRATIVE: CASE EVENT DATE: 20141213
